FAERS Safety Report 20060983 (Version 4)
Quarter: 2021Q4

REPORT INFORMATION
  Report Type: Spontaneous
  Country: MX (occurrence: MX)
  Receive Date: 20211112
  Receipt Date: 20211209
  Transmission Date: 20220303
  Serious: Yes (Death, Other)
  Sender: FDA-Public Use
  Company Number: MX-BoehringerIngelheim-2021-BI-137588

PATIENT
  Age: 73 Year
  Sex: Female

DRUGS (2)
  1. EMPAGLIFLOZIN\LINAGLIPTIN [Suspect]
     Active Substance: EMPAGLIFLOZIN\LINAGLIPTIN
     Indication: Diabetes mellitus
     Dosage: ONCE A DAY
  2. EMPAGLIFLOZIN\LINAGLIPTIN [Suspect]
     Active Substance: EMPAGLIFLOZIN\LINAGLIPTIN
     Dosage: INCREASED TWICE A DAY

REACTIONS (3)
  - Diabetic coma [Fatal]
  - Drug ineffective [Unknown]
  - Blood glucose increased [Unknown]
